FAERS Safety Report 12958831 (Version 1)
Quarter: 2016Q4

REPORT INFORMATION
  Report Type: Spontaneous
  Country: US (occurrence: US)
  Receive Date: 20161117
  Receipt Date: 20161117
  Transmission Date: 20170207
  Serious: Yes (Hospitalization)
  Sender: FDA-Public Use
  Company Number: None

PATIENT
  Age: 60 Year
  Sex: Female

DRUGS (22)
  1. CITALOPRAM [Suspect]
     Active Substance: CITALOPRAM HYDROBROMIDE
     Route: 048
  2. ATORVASTATIN [Concomitant]
     Active Substance: ATORVASTATIN
  3. GABAPENTIN. [Concomitant]
     Active Substance: GABAPENTIN
  4. INSULIN ASPART [Concomitant]
     Active Substance: INSULIN ASPART
  5. SEVELAMER [Concomitant]
     Active Substance: SEVELAMER
  6. SODIUM CITRATE+CITRIC ACID (BICITRA) [Concomitant]
  7. LEVOFLOXACIN. [Concomitant]
     Active Substance: LEVOFLOXACIN
  8. CARVEDILOL. [Concomitant]
     Active Substance: CARVEDILOL
  9. INSULIN GLARGINE [Concomitant]
     Active Substance: INSULIN GLARGINE
  10. METOLAZONE. [Concomitant]
     Active Substance: METOLAZONE
  11. FUROSEMIDE. [Suspect]
     Active Substance: FUROSEMIDE
     Indication: CARDIAC FAILURE
     Route: 042
  12. BENZTROPINE [Concomitant]
     Active Substance: BENZTROPINE
  13. CEFEPIME [Concomitant]
     Active Substance: CEFEPIME HYDROCHLORIDE
  14. CLONIDINE. [Concomitant]
     Active Substance: CLONIDINE
  15. HALOPERIDOL. [Concomitant]
     Active Substance: HALOPERIDOL
  16. LANSOPRAZOLE. [Concomitant]
     Active Substance: LANSOPRAZOLE
  17. ALBUTEROL. [Concomitant]
     Active Substance: ALBUTEROL
  18. ASPIRIN. [Concomitant]
     Active Substance: ASPIRIN
  19. HYDRALAZINE [Concomitant]
     Active Substance: HYDRALAZINE HYDROCHLORIDE
  20. LEVETIRACETAM. [Concomitant]
     Active Substance: LEVETIRACETAM
  21. ACETAMINOPHEN. [Concomitant]
     Active Substance: ACETAMINOPHEN
  22. HEPARIN [Concomitant]
     Active Substance: HEPARIN SODIUM

REACTIONS (3)
  - Dysuria [None]
  - Chest pain [None]
  - Hyponatraemia [None]

NARRATIVE: CASE EVENT DATE: 20160930
